FAERS Safety Report 5621935-8 (Version None)
Quarter: 2008Q1

REPORT INFORMATION
  Report Type: 
  Country: None (occurrence: None)
  Receive Date: 20080206
  Receipt Date: 20080125
  Transmission Date: 20080703
  Serious: Yes (Hospitalization)
  Sender: FDA-Public Use
  Company Number: GXKR2008TW01121

PATIENT
  Age: 78 Year
  Sex: Male

DRUGS (5)
  1. AMANTADINE HCL [Suspect]
     Indication: PARKINSON'S DISEASE
     Dosage: 100 MG, QD
     Dates: start: 20070316, end: 20070324
  2. LEVODOPA W/BENSARAZIDE/ (BENSARAZIDE, LEVODOPA) [Concomitant]
  3. CARBIDOPA/LEVODOPA ER (CARBIDOPA, LEVODOPA) [Concomitant]
  4. ROPINIROLE (ROPINIROLE) [Concomitant]
  5. CLONAZEPAM [Concomitant]

REACTIONS (15)
  - ASTHENIA [None]
  - BLOOD CREATINE PHOSPHOKINASE INCREASED [None]
  - CONFUSIONAL STATE [None]
  - DELIRIUM [None]
  - DIARRHOEA [None]
  - DISORIENTATION [None]
  - ELECTROENCEPHALOGRAM ABNORMAL [None]
  - HALLUCINATION, VISUAL [None]
  - HYPERTENSION [None]
  - MUSCLE RIGIDITY [None]
  - MYOCLONUS [None]
  - OVERDOSE [None]
  - PYREXIA [None]
  - RESPIRATORY RATE INCREASED [None]
  - SEROTONIN SYNDROME [None]
